FAERS Safety Report 7610121-8 (Version None)
Quarter: 2011Q3

REPORT INFORMATION
  Report Type: 
  Country: None (occurrence: None)
  Receive Date: 20110715
  Receipt Date: 20110706
  Transmission Date: 20111222
  Serious: No
  Sender: FDA-Public Use
  Company Number: US-BIOGENIDEC-2011BI016346

PATIENT
  Age: 45 Year
  Sex: Female

DRUGS (3)
  1. TYSABRI [Suspect]
     Indication: MULTIPLE SCLEROSIS
     Route: 042
     Dates: start: 20110314
  2. TORADOL [Concomitant]
     Route: 042
  3. REGLAN [Concomitant]
     Indication: PREMEDICATION
     Route: 042

REACTIONS (3)
  - BALANCE DISORDER [None]
  - HEADACHE [None]
  - MIGRAINE [None]
